FAERS Safety Report 7763471-9 (Version None)
Quarter: 2011Q3

REPORT INFORMATION
  Report Type: 
  Country: None (occurrence: None)
  Receive Date: 20110920
  Receipt Date: 20110909
  Transmission Date: 20111222
  Serious: Yes (Death, Hospitalization)
  Sender: FDA-Public Use
  Company Number: BE-BAXTER-2011BH029015

PATIENT
  Sex: Male

DRUGS (2)
  1. FEIBA [Suspect]
     Indication: FACTOR VIII DEFICIENCY
     Route: 042
  2. FEIBA [Suspect]
     Indication: FACTOR VIII INHIBITION
     Route: 042

REACTIONS (3)
  - TRAUMATIC INTRACRANIAL HAEMORRHAGE [None]
  - FALL [None]
  - SKULL FRACTURE [None]
